FAERS Safety Report 12172577 (Version 2)
Quarter: 2016Q4

REPORT INFORMATION
  Report Type: Spontaneous
  Country: FR (occurrence: FR)
  Receive Date: 20160311
  Receipt Date: 20161123
  Transmission Date: 20170207
  Serious: Yes (Congenital Anomaly)
  Sender: FDA-Public Use
  Company Number: FR-ABBVIE-16P-056-1578877-00

PATIENT
  Sex: Female
  Weight: 3.06 kg

DRUGS (1)
  1. DEPAKINE CHRONO [Suspect]
     Active Substance: VALPROATE SODIUM
     Indication: MATERNAL EXPOSURE TIMING UNSPECIFIED
     Route: 064
     Dates: end: 20151121

REACTIONS (8)
  - Weaning failure [Recovered/Resolved]
  - Developmental delay [Unknown]
  - Precocious puberty [Recovering/Resolving]
  - Abnormal behaviour [Unknown]
  - Speech disorder developmental [Unknown]
  - Hirsutism [Recovering/Resolving]
  - Foetal exposure during pregnancy [Unknown]
  - Ear infection [Unknown]

NARRATIVE: CASE EVENT DATE: 2009
